FAERS Safety Report 19247732 (Version 2)
Quarter: 2022Q2

REPORT INFORMATION
  Report Type: Report from Study
  Country: JP (occurrence: JP)
  Receive Date: 20210512
  Receipt Date: 20220418
  Transmission Date: 20220721
  Serious: Yes (Other)
  Sender: FDA-Public Use
  Company Number: JP-JNJJAKJPN-201414095

PATIENT
  Age: 34 Year
  Sex: Male

DRUGS (9)
  1. DARUNAVIR [Suspect]
     Active Substance: DARUNAVIR
     Indication: HIV infection
     Route: 048
     Dates: start: 20111008, end: 20151008
  2. TRUVADA [Suspect]
     Active Substance: EMTRICITABINE\TENOFOVIR DISOPROXIL FUMARATE
     Indication: HIV infection
     Route: 048
     Dates: start: 20111008, end: 20151008
  3. NORVIR [Suspect]
     Active Substance: RITONAVIR
     Indication: HIV infection
     Route: 048
     Dates: start: 20111008, end: 20151008
  4. GENVOYA [Concomitant]
     Active Substance: COBICISTAT\ELVITEGRAVIR\EMTRICITABINE\TENOFOVIR ALAFENAMIDE FUMARATE
     Dosage: UNKNOWN
     Route: 048
  5. TRIUMEQ [Concomitant]
     Active Substance: ABACAVIR SULFATE\DOLUTEGRAVIR SODIUM\LAMIVUDINE
     Indication: HIV infection
     Route: 048
     Dates: start: 20151009, end: 20201016
  6. MARAVIROC [Concomitant]
     Active Substance: MARAVIROC
     Indication: HIV infection
     Route: 048
     Dates: start: 20111008, end: 20121206
  7. DOVATO [Concomitant]
     Active Substance: DOLUTEGRAVIR SODIUM\LAMIVUDINE
     Indication: HIV infection
     Route: 048
     Dates: start: 20201017
  8. AMOXICILLIN [Concomitant]
     Active Substance: AMOXICILLIN
     Indication: Syphilis
     Route: 048
     Dates: start: 20151102, end: 20151228
  9. AMOXICILLIN TRIHYDRATE [Concomitant]
     Active Substance: AMOXICILLIN
     Indication: Syphilis
     Dosage: UNKNOWN
     Route: 048
     Dates: start: 20170421, end: 20170519

REACTIONS (3)
  - Hepatic function abnormal [Not Recovered/Not Resolved]
  - Syphilis [Recovering/Resolving]
  - Hypertriglyceridaemia [Recovering/Resolving]

NARRATIVE: CASE EVENT DATE: 20130425
